FAERS Safety Report 10071948 (Version 3)
Quarter: 2014Q4

REPORT INFORMATION
  Report Type: Spontaneous
  Country: JP (occurrence: JP)
  Receive Date: 20140411
  Receipt Date: 20141020
  Transmission Date: 20150528
  Serious: Yes (Hospitalization)
  Sender: FDA-Public Use
  Company Number: JP-AMGEN-JPNSP2014021415

PATIENT
  Age: 66 Year
  Sex: Female
  Weight: 47 kg

DRUGS (8)
  1. VITAMIN D                          /00107901/ [Concomitant]
     Active Substance: ERGOCALCIFEROL
     Indication: HYPERPARATHYROIDISM
     Dosage: UNK
     Dates: start: 201304
  2. TAKEPRON [Concomitant]
     Active Substance: LANSOPRAZOLE
     Indication: GASTRITIS PROPHYLAXIS
     Dosage: 15 MG, QD
     Route: 048
  3. REGPARA [Concomitant]
     Active Substance: CINACALCET HYDROCHLORIDE
     Indication: HYPERPARATHYROIDISM
     Dosage: 25 MG, QD
     Route: 048
     Dates: start: 201304, end: 201403
  4. ROCALTROL [Concomitant]
     Active Substance: CALCITRIOL
     Dosage: UNK
     Route: 065
  5. PRALIA [Suspect]
     Active Substance: DENOSUMAB
     Indication: OSTEOPOROSIS
     Dosage: 60 MG, UNK
     Route: 058
     Dates: start: 20140312
  6. CALCIUM CARBONATE. [Concomitant]
     Active Substance: CALCIUM CARBONATE
     Indication: HYPERPHOSPHATAEMIA
     Dosage: 1 G, TID
     Route: 048
  7. RALOXIFENE [Concomitant]
     Active Substance: RALOXIFENE
     Indication: OSTEOPOROSIS
     Dosage: 60 MG, QD
     Route: 065
     Dates: start: 201304
  8. NESP [Concomitant]
     Active Substance: DARBEPOETIN ALFA
     Indication: NEPHROGENIC ANAEMIA
     Dosage: 20 MUG, QWK
     Route: 042
     Dates: start: 20131202, end: 20140322

REACTIONS (1)
  - Hypocalcaemia [Unknown]

NARRATIVE: CASE EVENT DATE: 20140318
